FAERS Safety Report 9458126 (Version 1)
Quarter: 2013Q3

REPORT INFORMATION
  Report Type: Spontaneous
  Country: FR (occurrence: FR)
  Receive Date: 20130814
  Receipt Date: 20130814
  Transmission Date: 20140515
  Serious: Yes (Hospitalization)
  Sender: FDA-Public Use
  Company Number: FR-009507513-1308FRA003073

PATIENT
  Age: 64 Year
  Sex: Male

DRUGS (11)
  1. NOROXINE [Suspect]
     Indication: URINARY TRACT INFECTION
     Dosage: UNK
     Route: 048
     Dates: start: 20120810, end: 20120819
  2. PREVISCAN [Suspect]
     Dosage: UNK
     Route: 048
     Dates: start: 20120729, end: 20120820
  3. ZOMETA [Suspect]
     Dosage: 4 MG, ONCE
     Route: 042
     Dates: start: 20120729
  4. VELCADE [Concomitant]
     Dosage: UNK
     Route: 042
     Dates: start: 20120729, end: 20120820
  5. THALIDOMIDE [Concomitant]
     Dosage: UNK
     Route: 048
     Dates: start: 20120729, end: 20120820
  6. DEXAMETHASONE [Concomitant]
     Dosage: UNK
     Route: 048
     Dates: start: 20120729, end: 20120820
  7. ZELITREX [Concomitant]
     Dosage: UNK
     Route: 048
     Dates: start: 20120729, end: 20120820
  8. BACTRIM FORTE [Concomitant]
     Dosage: UNK
     Route: 048
     Dates: start: 20120729, end: 20120820
  9. MICARDIS PLUS [Concomitant]
     Route: 048
  10. INIPOMP [Concomitant]
     Route: 048
  11. OMEXEL [Concomitant]
     Dosage: UNK
     Route: 048

REACTIONS (2)
  - Tubulointerstitial nephritis [Recovered/Resolved]
  - Eosinophilia [Recovered/Resolved]
